FAERS Safety Report 11051590 (Version 1)
Quarter: 2015Q2

REPORT INFORMATION
  Report Type: Report from Study
  Country: GB (occurrence: GB)
  Receive Date: 20150421
  Receipt Date: 20150421
  Transmission Date: 20150821
  Serious: Yes (Hospitalization)
  Sender: FDA-Public Use
  Company Number: GB-ABBVIE-15K-167-1375741-00

PATIENT
  Age: 59 Year
  Sex: Female
  Weight: 57.3 kg

DRUGS (1)
  1. HUMIRA [Suspect]
     Active Substance: ADALIMUMAB
     Indication: PSORIASIS
     Route: 058
     Dates: start: 20121114

REACTIONS (6)
  - Nerve compression [Unknown]
  - Ulna fracture [Recovered/Resolved with Sequelae]
  - Carpal tunnel syndrome [Unknown]
  - Radius fracture [Recovered/Resolved with Sequelae]
  - Neurological symptom [Unknown]
  - Post procedural complication [Unknown]

NARRATIVE: CASE EVENT DATE: 20131225
